FAERS Safety Report 18961528 (Version 1)
Quarter: 2021Q1

REPORT INFORMATION
  Report Type: Other
  Country: US (occurrence: US)
  Receive Date: 20210302
  Receipt Date: 20210302
  Transmission Date: 20210420
  Serious: Yes (Other)
  Sender: FDA-Public Use
  Company Number: US-ROCHE-2772903

PATIENT
  Sex: Female

DRUGS (1)
  1. XELODA [Suspect]
     Active Substance: CAPECITABINE
     Indication: METASTASES TO BONE
     Dosage: TAKE 3 TABLET(S) BY MOUTH TWICE A DAY FOR 14 DAYS THEN TAKE 7 DAYS OFF EVERY 21 DAYS
     Route: 048

REACTIONS (5)
  - Intentional product use issue [Unknown]
  - Off label use [Unknown]
  - Metastases to abdominal cavity [Unknown]
  - Metastases to bone [Unknown]
  - Gastrointestinal disorder [Unknown]
